FAERS Safety Report 16732709 (Version 1)
Quarter: 2019Q3

REPORT INFORMATION
  Report Type: Spontaneous
  Country: US (occurrence: US)
  Receive Date: 20190823
  Receipt Date: 20190823
  Transmission Date: 20191005
  Serious: Yes (Hospitalization)
  Sender: FDA-Public Use
  Company Number: US-ROCHE-2385540

PATIENT
  Age: 58 Year
  Sex: Male

DRUGS (2)
  1. MYCOPHENOLATE MOFETIL. [Suspect]
     Active Substance: MYCOPHENOLATE MOFETIL
     Indication: PROPHYLAXIS AGAINST TRANSPLANT REJECTION
     Route: 042
  2. DEXTROSE 5% [Concomitant]
     Active Substance: DEXTROSE
     Dosage: MYCOPHENOLATE MOFETIL (MM) WAS RECONSTITUTED IN 250 ML OF 5% DEXTROSE INFUSED OVER TWO HOURS TWICE D
     Route: 042

REACTIONS (1)
  - Soft tissue necrosis [Unknown]
